FAERS Safety Report 4712121-4 (Version None)
Quarter: 2005Q3

REPORT INFORMATION
  Report Type: 
  Country: None (occurrence: None)
  Receive Date: 20050712
  Receipt Date: 20050628
  Transmission Date: 20060218
  Serious: Yes (Death)
  Sender: FDA-Public Use
  Company Number: 200512165FR

PATIENT
  Age: 58 Year
  Sex: Male

DRUGS (6)
  1. TELFAST [Suspect]
     Route: 048
  2. COLCHIMAX [Suspect]
     Route: 048
  3. ALLOPURINOL [Suspect]
     Route: 048
     Dates: start: 20020101, end: 20040101
  4. TAREG [Concomitant]
     Route: 048
  5. AMLODIPINE BESYLATE [Concomitant]
     Route: 048
  6. FLUDEX [Concomitant]
     Route: 048

REACTIONS (7)
  - DRUG RASH WITH EOSINOPHILIA AND SYSTEMIC SYMPTOMS [None]
  - EOSINOPHILIA [None]
  - HEPATOMEGALY [None]
  - LYMPHADENOPATHY [None]
  - NEPHRITIS INTERSTITIAL [None]
  - PYREXIA [None]
  - STEVENS-JOHNSON SYNDROME [None]
